FAERS Safety Report 18164770 (Version 2)
Quarter: 2021Q2

REPORT INFORMATION
  Report Type: Report from Study
  Country: FR (occurrence: FR)
  Receive Date: 20200818
  Receipt Date: 20210421
  Transmission Date: 20210717
  Serious: Yes (Hospitalization, Other)
  Sender: FDA-Public Use
  Company Number: FR-JNJFOC-20200700495

PATIENT
  Age: 59 Year
  Sex: Female

DRUGS (25)
  1. CARFILZOMIB [Suspect]
     Active Substance: CARFILZOMIB
     Dosage: 65.2 MILLIGRAM EVERY 2 WEEK / C2 36 MG/M2 TWICE A WEEK(65.2MG/D) DAY 1?2
     Route: 042
     Dates: start: 20200227, end: 20200228
  2. DEXAMETHASONE NON?COMPANY [Suspect]
     Active Substance: DEXAMETHASONE
     Dosage: 20 MILLIGRAM EVERY 2 WEEK / C2 (OMITTED 06/03/2020)
     Route: 048
     Dates: start: 20200227, end: 20200319
  3. DEXAMETHASONE NON?COMPANY [Suspect]
     Active Substance: DEXAMETHASONE
     Dosage: 20 MILLIGRAM EVERY 2 WEEK / C3
     Route: 048
     Dates: start: 20200326, end: 20200417
  4. DARATUMUMAB [Suspect]
     Active Substance: DARATUMUMAB
     Dosage: 1120 MILLIGRAM EVERY 1 WEEK / C2 DAY 1 16 MG/KG ONCE A WEEK
     Route: 042
     Dates: start: 20200227, end: 20200227
  5. DARATUMUMAB [Suspect]
     Active Substance: DARATUMUMAB
     Dosage: 1120 MILLIGRAM EVERY 1 WEEK / C4 DAY 1 AND 15 16 MG/KG
     Route: 042
     Dates: start: 20200423, end: 20200506
  6. CARFILZOMIB [Suspect]
     Active Substance: CARFILZOMIB
     Dosage: 65.2 MILLIGRAM EVERY 2 WEEK / C2 36 MG/M2 TWICE A WEEK(65.2MG/D) DAY 15?16
     Route: 042
     Dates: start: 20200312, end: 20200313
  7. LENALIDOMIDE [Suspect]
     Active Substance: LENALIDOMIDE
     Dosage: UNKNOWN / 25 MG/D UNTIL DAY 15 THEN 10 MG/DAY
     Route: 048
     Dates: start: 20200130, end: 20200219
  8. LENALIDOMIDE [Suspect]
     Active Substance: LENALIDOMIDE
     Dosage: 10 MILLIGRAM / C3
     Route: 048
     Dates: start: 20200326, end: 20200415
  9. DARATUMUMAB [Suspect]
     Active Substance: DARATUMUMAB
     Dosage: 16 MG/KG ONCE A WEEK (1120 MG/D)
     Route: 042
     Dates: start: 20200130, end: 20200220
  10. DARATUMUMAB [Suspect]
     Active Substance: DARATUMUMAB
     Dosage: 1120 MILLIGRAM EVERY 1 WEEK / C2 DAY 15 ?22 16 MG/KG ONCE A WEEK
     Route: 042
     Dates: start: 20200312, end: 20200319
  11. DEXAMETHASONE NON?COMPANY [Suspect]
     Active Substance: DEXAMETHASONE
     Indication: PLASMA CELL MYELOMA
     Dosage: 20 MILLIGRAM EVERY 2 WEEK / 20 MG ONCE A DAY AT DAYS 1?2;8?9;15?16 AND 22?23 OF C1
     Route: 048
     Dates: start: 20200130, end: 20200221
  12. DEXAMETHASONE NON?COMPANY [Suspect]
     Active Substance: DEXAMETHASONE
     Dosage: 20 MILLIGRAM EVERY 2 WEEK / 20 MG ONCE A DAY AT DAYS 1?2;8?9;15?16 AND 22?23 OF C1
     Route: 048
     Dates: start: 20200130, end: 20200221
  13. DARATUMUMAB [Suspect]
     Active Substance: DARATUMUMAB
     Dosage: 1120 MILLIGRAM EVERY 1 WEEK / C3 DAY 1 AND 15 16 MG/KG
     Route: 042
     Dates: start: 20200326, end: 20200409
  14. DARATUMUMAB [Suspect]
     Active Substance: DARATUMUMAB
     Dosage: 1120 MILLIGRAM EVERY 1 WEEK / C5 DAY 1 AND 15 16 MG/KG
     Route: 042
     Dates: start: 20200520, end: 20200604
  15. CARFILZOMIB [Suspect]
     Active Substance: CARFILZOMIB
     Dosage: 65.2 MILLIGRAM EVERY 2 WEEK / C4 36 MG/M2 TWICE A WEEK(65.2MG/D)
     Route: 042
     Dates: start: 20200423, end: 20200507
  16. LENALIDOMIDE [Suspect]
     Active Substance: LENALIDOMIDE
     Dosage: 10 MILLIGRAM / C2
     Route: 048
     Dates: start: 20200227, end: 20200318
  17. DEXAMETHASONE NON?COMPANY [Suspect]
     Active Substance: DEXAMETHASONE
     Dosage: 20 MILLIGRAM EVERY 2 WEEK / C5
     Route: 048
     Dates: start: 20200520, end: 20200612
  18. DARATUMUMAB [Suspect]
     Active Substance: DARATUMUMAB
     Indication: PLASMA CELL MYELOMA
     Dosage: UNKNOWN / 8 MG/KG(560 MG) DAYS 1 AND 2 C1
     Route: 042
     Dates: start: 20200130, end: 20200220
  19. CARFILZOMIB [Suspect]
     Active Substance: CARFILZOMIB
     Indication: PLASMA CELL MYELOMA
     Dosage: UNKNOWN / 20 MG/M2 DAYS 1 AND 2 C1(36.2 MG/D) THEN 36 MG/M2 TWICE A WEEK (65.2 MG/D)
     Route: 042
     Dates: start: 20200130, end: 20200214
  20. CARFILZOMIB [Suspect]
     Active Substance: CARFILZOMIB
     Dosage: 65.2 MILLIGRAM EVERY 2 WEEK / C3 36 MG/M2 TWICE A WEEK(65.2MG/D)
     Route: 042
     Dates: start: 20200326, end: 20200416
  21. CARFILZOMIB [Suspect]
     Active Substance: CARFILZOMIB
     Dosage: 65.2 MILLIGRAM EVERY 2 WEEK / C5 36 MG/M2 TWICE A WEEK(65.2 MG/D)
     Route: 042
     Dates: start: 20200520, end: 20200605
  22. LENALIDOMIDE [Suspect]
     Active Substance: LENALIDOMIDE
     Dosage: 10 MILLIGRAM / C4
     Route: 048
     Dates: start: 20200423, end: 20200513
  23. DEXAMETHASONE NON?COMPANY [Suspect]
     Active Substance: DEXAMETHASONE
     Dosage: 20 MILLIGRAM EVERY 2 WEEK / C4
     Route: 048
     Dates: start: 20200423, end: 20200515
  24. LENALIDOMIDE [Suspect]
     Active Substance: LENALIDOMIDE
     Indication: PLASMA CELL MYELOMA
     Dosage: UNKNOWN / 25 MG/D UNTIL DAY 15 THEN 10 MG/DAY
     Route: 048
     Dates: start: 20200130, end: 20200219
  25. LENALIDOMIDE [Suspect]
     Active Substance: LENALIDOMIDE
     Dosage: 10 MILLIGRAM / C5
     Route: 048
     Dates: start: 20200520, end: 20200609

REACTIONS (2)
  - Pneumonia cytomegaloviral [Recovered/Resolved]
  - Acute kidney injury [Not Recovered/Not Resolved]

NARRATIVE: CASE EVENT DATE: 20200618
